FAERS Safety Report 6458706-9 (Version None)
Quarter: 2009Q4

REPORT INFORMATION
  Report Type: 
  Country: None (occurrence: None)
  Receive Date: 20091127
  Receipt Date: 20091120
  Transmission Date: 20100525
  Serious: Yes (Other)
  Sender: FDA-Public Use
  Company Number: US-ROCHE-666146

PATIENT
  Sex: Male

DRUGS (17)
  1. CAPECITABINE [Suspect]
     Indication: BLADDER CANCER
     Route: 048
     Dates: start: 20090910
  2. CAPECITABINE [Suspect]
     Route: 048
     Dates: start: 20091006
  3. SPIRIVA [Concomitant]
     Dosage: FORM: PUFF, DAILY DOSE
  4. ADVAIR DISKUS 100/50 [Concomitant]
     Dosage: FORM: PUFFS
  5. LYRICA [Concomitant]
  6. SAVELLA [Concomitant]
  7. VICODIN ES [Concomitant]
  8. ZANTAC [Concomitant]
  9. MIDODRINE HYDROCHLORIDE [Concomitant]
  10. COREG [Concomitant]
  11. LASIX [Concomitant]
  12. KLOR-CON [Concomitant]
  13. AUGMENTIN [Concomitant]
  14. IRON [Concomitant]
  15. COLACE [Concomitant]
  16. LUNESTA [Concomitant]
  17. CALCIUM/VITAMIN D [Concomitant]
     Dosage: CALCIUM/VITAMIN D: 600 MG + 200 IU,DAILY DOSE

REACTIONS (1)
  - HALLUCINATION [None]
